FAERS Safety Report 4429280-3 (Version None)
Quarter: 2004Q3

REPORT INFORMATION
  Report Type: 
  Country: None (occurrence: None)
  Receive Date: 20040818
  Receipt Date: 20040818
  Transmission Date: 20050211
  Serious: No
  Sender: FDA-Public Use
  Company Number: None

PATIENT
  Age: 89 Year
  Sex: Male
  Weight: 68.9467 kg

DRUGS (2)
  1. PRIMAXIN [Suspect]
     Indication: SEPSIS
     Dosage: 500 MG Q 12 H IV
     Route: 042
     Dates: start: 20040815, end: 20040816
  2. PRIMAXIN [Suspect]
     Indication: WHITE BLOOD CELL COUNT INCREASED
     Dosage: 500 MG Q 12 H IV
     Route: 042
     Dates: start: 20040815, end: 20040816

REACTIONS (1)
  - CONVULSION [None]
